FAERS Safety Report 22136761 (Version 1)
Quarter: 2023Q1

REPORT INFORMATION
  Report Type: Spontaneous
  Country: US (occurrence: US)
  Receive Date: 20230324
  Receipt Date: 20230324
  Transmission Date: 20230418
  Serious: No
  Sender: FDA-Public Use
  Company Number: US-LANNETT COMPANY, INC.-US-2022LAN000127

PATIENT
  Age: 48 Year
  Sex: Male

DRUGS (2)
  1. SUMATRIPTAN [Suspect]
     Active Substance: SUMATRIPTAN
     Indication: Cluster headache
     Dosage: 0.1ML PER UNIT, 5 MILLIGRAM, AS NEEDED EVERY 2 HOURS
     Route: 045
     Dates: start: 20220616
  2. SUMATRIPTAN [Suspect]
     Active Substance: SUMATRIPTAN
     Dosage: 0.1ML PER UNIT, 5 MILLIGRAM, AS NEEDED EVERY 2 HOURS
     Route: 045
     Dates: start: 20220623

REACTIONS (3)
  - Headache [Recovered/Resolved]
  - Drug ineffective [Unknown]
  - Complication associated with device [Unknown]

NARRATIVE: CASE EVENT DATE: 20220601
